FAERS Safety Report 25222485 (Version 1)
Quarter: 2025Q2

REPORT INFORMATION
  Report Type: Report from Study
  Country: TW (occurrence: TW)
  Receive Date: 20250421
  Receipt Date: 20250421
  Transmission Date: 20250717
  Serious: Yes (Hospitalization)
  Sender: ABBVIE
  Company Number: TW-ABBVIE-6232220

PATIENT
  Age: 59 Year
  Sex: Male
  Weight: 68 kg

DRUGS (1)
  1. RINVOQ [Suspect]
     Active Substance: UPADACITINIB
     Indication: Rheumatoid arthritis
     Route: 048
     Dates: start: 20230515, end: 20250410

REACTIONS (3)
  - Muscular weakness [Not Recovered/Not Resolved]
  - Spinal osteoarthritis [Unknown]
  - Ischaemia [Unknown]

NARRATIVE: CASE EVENT DATE: 20250410
